FAERS Safety Report 9315094 (Version 1)
Quarter: 2013Q2

REPORT INFORMATION
  Report Type: Spontaneous
  Country: US (occurrence: US)
  Receive Date: 20130529
  Receipt Date: 20130529
  Transmission Date: 20140414
  Serious: No
  Sender: FDA-Public Use
  Company Number: US-ALEXION-A201301201

PATIENT
  Sex: Female

DRUGS (4)
  1. SOLIRIS 300MG [Suspect]
     Indication: HAEMOLYTIC URAEMIC SYNDROME
     Dosage: 900 MG, Q2W
     Route: 042
     Dates: start: 20130222
  2. VERAPAMIL [Concomitant]
  3. AMIODARONE [Concomitant]
  4. INSULIN [Concomitant]

REACTIONS (1)
  - Local swelling [Unknown]
